FAERS Safety Report 21691659 (Version 3)
Quarter: 2022Q4

REPORT INFORMATION
  Report Type: Spontaneous
  Country: IT (occurrence: IT)
  Receive Date: 20221207
  Receipt Date: 20221223
  Transmission Date: 20230113
  Serious: Yes (Other)
  Sender: FDA-Public Use
  Company Number: IT-002147023-NVSC2022IT281260

PATIENT
  Age: 60 Year
  Sex: Male

DRUGS (2)
  1. PAZOPANIB [Suspect]
     Active Substance: PAZOPANIB
     Indication: Product used for unknown indication
     Dosage: 800 MG, QD
     Route: 065
     Dates: start: 201906
  2. PAZOPANIB [Suspect]
     Active Substance: PAZOPANIB
     Dosage: 400 MG, QD
     Route: 065
     Dates: start: 202102, end: 202207

REACTIONS (6)
  - Dyspnoea at rest [Unknown]
  - Disease progression [Unknown]
  - Vena cava thrombosis [Unknown]
  - Hypertensive crisis [Recovered/Resolved]
  - Heteroplasia [Unknown]
  - Asthenia [Unknown]

NARRATIVE: CASE EVENT DATE: 20210201
